FAERS Safety Report 6924389-4 (Version None)
Quarter: 2010Q3

REPORT INFORMATION
  Report Type: 
  Country: None (occurrence: None)
  Receive Date: 20100728
  Receipt Date: 20100324
  Transmission Date: 20110219
  Serious: Yes (Death, Life-Threatening, Other)
  Sender: FDA-Public Use
  Company Number: AECAN201000087

PATIENT
  Age: 74 Year
  Sex: Female
  Weight: 100 kg

DRUGS (15)
  1. GAMUNEX [Suspect]
     Indication: NECROTISING FASCIITIS
     Dosage: 20 GM; IV
     Route: 042
     Dates: start: 20100313
  2. IGIVNEX [Suspect]
     Indication: NECROTISING FASCIITIS
     Dosage: 30 GM; IV
     Route: 042
     Dates: start: 20100313, end: 20100313
  3. IGIVNEX [Suspect]
  4. GAMMAGARD [Suspect]
     Indication: NECROTISING FASCIITIS
     Dosage: 10 GM; IV
     Route: 042
     Dates: start: 20100313, end: 20100313
  5. VITAMIN B-COMPLEX /90004601/ [Concomitant]
  6. ASCORBIC ACID [Concomitant]
  7. ZINC [Concomitant]
  8. DIMENHYDRINATE [Concomitant]
  9. LACTULOSE [Concomitant]
  10. METOCLOPRAMIDE [Concomitant]
  11. METOPROLOL TARTRATE [Concomitant]
  12. MORPHINE [Concomitant]
  13. PENICILLIN [Concomitant]
  14. RANITIDINE [Concomitant]
  15. CLINDAMYCIN [Concomitant]

REACTIONS (7)
  - ASPIRATION [None]
  - BLOOD BILIRUBIN INCREASED [None]
  - BLOOD LACTATE DEHYDROGENASE INCREASED [None]
  - CARDIAC ARREST [None]
  - HAEMOGLOBIN DECREASED [None]
  - HAEMOLYTIC ANAEMIA [None]
  - PNEUMOTHORAX [None]
